FAERS Safety Report 13778634 (Version 1)
Quarter: 2017Q3

REPORT INFORMATION
  Report Type: Spontaneous
  Country: US (occurrence: US)
  Receive Date: 20170721
  Receipt Date: 20170721
  Transmission Date: 20171127
  Serious: Yes (Other)
  Sender: FDA-Public Use
  Company Number: US-ROCHE-1965379

PATIENT
  Sex: Female

DRUGS (1)
  1. ACTEMRA [Suspect]
     Active Substance: TOCILIZUMAB
     Indication: RHEUMATOID ARTHRITIS
     Route: 042

REACTIONS (9)
  - Peripheral swelling [Unknown]
  - Skin fissures [Unknown]
  - Localised infection [Unknown]
  - Gram stain positive [Unknown]
  - Erythema [Unknown]
  - Rheumatoid arthritis [Unknown]
  - Neutrophil count increased [Unknown]
  - White blood cell count increased [Unknown]
  - Tendonitis [Unknown]

NARRATIVE: CASE EVENT DATE: 20170708
